FAERS Safety Report 14328230 (Version 1)
Quarter: 2017Q4

REPORT INFORMATION
  Report Type: Spontaneous
  Country: CN (occurrence: CN)
  Receive Date: 20171227
  Receipt Date: 20171227
  Transmission Date: 20180321
  Serious: Yes (Other)
  Sender: FDA-Public Use
  Company Number: CN-PFIZER INC-2017546133

PATIENT
  Age: 74 Year
  Sex: Female

DRUGS (6)
  1. GUANXINDANSHENDIWAN [Concomitant]
     Dosage: UNK
  2. GLUCOBAY [Concomitant]
     Active Substance: ACARBOSE
     Dosage: UNK
  3. NIMODIPINE. [Concomitant]
     Active Substance: NIMODIPINE
     Dosage: UNK
  4. INSULIN [Concomitant]
     Active Substance: INSULIN NOS
     Dosage: UNK
     Route: 058
  5. MEPEM [Suspect]
     Active Substance: MEROPENEM
     Indication: ENTEROCOCCAL INFECTION
  6. MEPEM [Suspect]
     Active Substance: MEROPENEM
     Indication: INTESTINAL OBSTRUCTION
     Dosage: 1 G, 3X/DAY (1.5 HOURS)
     Route: 041
     Dates: start: 20160907

REACTIONS (1)
  - Telangiectasia [Recovering/Resolving]

NARRATIVE: CASE EVENT DATE: 20160907
